FAERS Safety Report 5861256-1 (Version None)
Quarter: 2008Q3

REPORT INFORMATION
  Report Type: 
  Country: None (occurrence: None)
  Receive Date: 20080827
  Receipt Date: 20080401
  Transmission Date: 20090109
  Serious: No
  Sender: FDA-Public Use
  Company Number: US-ABBOTT-08P-163-0444896-00

PATIENT
  Sex: Female
  Weight: 101.8 kg

DRUGS (9)
  1. COATED PDS [Suspect]
     Indication: HYPERCHOLESTEROLAEMIA
     Route: 048
     Dates: start: 20071101
  2. METHOTREXATE [Suspect]
     Indication: RHEUMATOID ARTHRITIS
     Route: 030
     Dates: start: 20030101
  3. ORENCIA [Suspect]
     Indication: RHEUMATOID ARTHRITIS
     Route: 042
     Dates: start: 20070101
  4. FOLIC ACID [Concomitant]
     Indication: VITAMIN SUPPLEMENTATION
  5. AMITRIPTYLINE HCL [Concomitant]
     Indication: PAIN
  6. WARFARIN SODIUM [Concomitant]
     Indication: DRUG USE FOR UNKNOWN INDICATION
  7. STEROIDS [Concomitant]
     Indication: RHEUMATOID ARTHRITIS
     Dates: start: 19980101
  8. WESCOL [Concomitant]
     Indication: HYPERCHOLESTEROLAEMIA
  9. ALLOPURINOL [Concomitant]
     Indication: GOUT

REACTIONS (3)
  - FLUSHING [None]
  - PRURITUS GENERALISED [None]
  - SKIN BURNING SENSATION [None]
